FAERS Safety Report 8260010-3 (Version None)
Quarter: 2012Q2

REPORT INFORMATION
  Report Type: 
  Country: None (occurrence: None)
  Receive Date: 20120404
  Receipt Date: 20120326
  Transmission Date: 20120825
  Serious: Yes (Other)
  Sender: FDA-Public Use
  Company Number: US-JNJFOC-20120313818

PATIENT
  Age: 84 Year
  Sex: Female
  Weight: 49.9 kg

DRUGS (3)
  1. EXTRA STRENGTH TYLENOL PM CAPLETS [Suspect]
     Dosage: 1 CAPLET THE FIRST 2 NIGHTS, 2 CAPLETS A FEW NIGHTS LATER.
     Route: 048
     Dates: start: 20120301, end: 20120301
  2. COUMADIN [Concomitant]
     Indication: HEART RATE IRREGULAR
     Route: 065
  3. EXTRA STRENGTH TYLENOL PM CAPLETS [Suspect]
     Indication: HYPERSOMNIA
     Route: 048
     Dates: start: 20120301, end: 20120301

REACTIONS (4)
  - HYPERTENSION [None]
  - CONTRAINDICATION TO MEDICAL TREATMENT [None]
  - DIZZINESS [None]
  - DRUG INEFFECTIVE [None]
